FAERS Safety Report 6444550-5 (Version None)
Quarter: 2009Q4

REPORT INFORMATION
  Report Type: 
  Country: None (occurrence: None)
  Receive Date: 20091118
  Receipt Date: 20090807
  Transmission Date: 20100525
  Serious: No
  Sender: FDA-Public Use
  Company Number: A0801115A

PATIENT
  Sex: Female

DRUGS (4)
  1. COREG CR [Suspect]
     Dosage: 40MG PER DAY
     Route: 048
     Dates: start: 20090709
  2. PLAVIX [Concomitant]
  3. HYDROCHLOROTHIAZIDE [Concomitant]
  4. DIGOXIN [Concomitant]

REACTIONS (3)
  - BLOOD PRESSURE INCREASED [None]
  - FLUSHING [None]
  - HYPERHIDROSIS [None]
